FAERS Safety Report 9973014 (Version 1)
Quarter: 2014Q1

REPORT INFORMATION
  Report Type: Spontaneous
  Country: US (occurrence: None)
  Receive Date: 20140128
  Receipt Date: 20140128
  Transmission Date: 20141002
  Serious: Yes (Life-Threatening, Hospitalization, Other)
  Sender: FDA-Public Use
  Company Number: A-US2013-81244

PATIENT
  Age: 34 Year
  Sex: Female

DRUGS (3)
  1. TRACLEER [Suspect]
     Indication: PULMONARY ARTERIAL HYPERTENSION
     Route: 048
  2. SILDENAFIL (SILDENAFIL) [Concomitant]
  3. REMODULIN (TREPROSTINIL SODIUM) [Concomitant]

REACTIONS (2)
  - Cor pulmonale [None]
  - Dyspnoea [None]
